FAERS Safety Report 22148017 (Version 3)
Quarter: 2023Q2

REPORT INFORMATION
  Report Type: Report from Study
  Country: NO (occurrence: None)
  Receive Date: 20230328
  Receipt Date: 20230407
  Transmission Date: 20230721
  Serious: Yes (Hospitalization)
  Sender: FDA-Public Use
  Company Number: NO-Eisai Medical Research-EC-2023-137070

PATIENT
  Age: 71 Year
  Sex: Female
  Weight: 55.4 kg

DRUGS (12)
  1. LENVATINIB [Suspect]
     Active Substance: LENVATINIB
     Indication: Clear cell renal cell carcinoma
     Dosage: STARTING DOSE AT 20 MG, QD (FLUCTUATED DOSAGE)
     Route: 048
     Dates: start: 20211115, end: 20230308
  2. PEMBROLIZUMAB [Suspect]
     Active Substance: PEMBROLIZUMAB
     Indication: Clear cell renal cell carcinoma
     Route: 041
     Dates: start: 20211115, end: 20230228
  3. PANTOPRAZOLE [Concomitant]
     Active Substance: PANTOPRAZOLE
     Dates: start: 202105
  4. ZOPICLONE [Concomitant]
     Active Substance: ZOPICLONE
     Dates: start: 20211201, end: 20230330
  5. METOCLOPRAMIDE [Concomitant]
     Active Substance: METOCLOPRAMIDE
     Dates: start: 20211227
  6. ELIQUIS [Concomitant]
     Active Substance: APIXABAN
     Dates: start: 20220408
  7. AMLODIPINE [Concomitant]
     Active Substance: AMLODIPINE BESYLATE
     Dates: start: 20220708
  8. PREDNISOLONE [Concomitant]
     Active Substance: PREDNISOLONE
     Dates: start: 20220709, end: 20230317
  9. ACETAMINOPHEN [Concomitant]
     Active Substance: ACETAMINOPHEN
     Dates: start: 20220913
  10. MOVICOL [Concomitant]
     Active Substance: POLYETHYLENE GLYCOL 3350\POTASSIUM CHLORIDE\SODIUM BICARBONATE\SODIUM CHLORIDE
     Dates: start: 20220913
  11. MORPHINE [Concomitant]
     Active Substance: MORPHINE
     Dates: start: 20221004
  12. DOLCONTIN [MORPHINE SULFATE] [Concomitant]
     Dates: start: 20221228, end: 20230317

REACTIONS (2)
  - Hepatitis [Not Recovered/Not Resolved]
  - Dehydration [Recovered/Resolved]

NARRATIVE: CASE EVENT DATE: 20230309
